FAERS Safety Report 4453875-4 (Version None)
Quarter: 2004Q3

REPORT INFORMATION
  Report Type: 
  Country: None (occurrence: None)
  Receive Date: 20040920
  Receipt Date: 20040708
  Transmission Date: 20050211
  Serious: Yes (Hospitalization)
  Sender: FDA-Public Use
  Company Number: FR-MERCK-0407FRA00021

PATIENT
  Age: 72 Year
  Sex: Female

DRUGS (7)
  1. ACETAMINOPHEN AND PROPOXYPHENE HYDROCHLORIDE [Concomitant]
     Indication: OSTEOARTHRITIS
     Route: 048
  2. CHONDROITIN [Concomitant]
     Indication: OSTEOARTHRITIS
     Route: 048
  3. FENOFIBRATE [Concomitant]
     Indication: HYPERCHOLESTEROLAEMIA
     Route: 048
  4. HYDROCHLOROTHIAZIDE AND LISINOPRIL [Concomitant]
     Indication: HYPERTENSION
     Route: 048
  5. RALOXIFENE HYDROCHLORIDE [Concomitant]
     Indication: OSTEOPOROSIS
     Route: 048
  6. VIOXX [Suspect]
     Indication: OSTEOARTHRITIS
     Route: 048
     Dates: start: 20030101, end: 20040601
  7. VIOXX [Suspect]
     Route: 048
     Dates: start: 20040601, end: 20040701

REACTIONS (3)
  - COLON CANCER METASTATIC [None]
  - DYSPEPSIA [None]
  - HEPATIC NEOPLASM [None]
